FAERS Safety Report 4732434-X (Version None)
Quarter: 2005Q3

REPORT INFORMATION
  Report Type: 
  Country: None (occurrence: None)
  Receive Date: 20050803
  Receipt Date: 20050426
  Transmission Date: 20060218
  Serious: Yes (Disabling)
  Sender: FDA-Public Use
  Company Number: JP-SP-2005-00806

PATIENT
  Age: 61 Year
  Sex: Male

DRUGS (1)
  1. IMMUCYST [Suspect]
     Indication: BLADDER CANCER
     Route: 043
     Dates: start: 20050401, end: 20050410

REACTIONS (9)
  - BLADDER PERFORATION [None]
  - IMPLANT SITE EFFUSION [None]
  - INCISION SITE COMPLICATION [None]
  - MYCOBACTERIAL INFECTION [None]
  - PERITONEAL TUBERCULOSIS [None]
  - RETROPERITONEAL ABSCESS [None]
  - SCAR [None]
  - SUTURE RUPTURE [None]
  - URINARY BLADDER ABSCESS [None]
